FAERS Safety Report 9315237 (Version 1)
Quarter: 2013Q2

REPORT INFORMATION
  Report Type: Spontaneous
  Country: US (occurrence: US)
  Receive Date: 20130529
  Receipt Date: 20130529
  Transmission Date: 20140414
  Serious: Yes (Hospitalization)
  Sender: FDA-Public Use
  Company Number: US-BRISTOL-MYERS SQUIBB COMPANY-18953596

PATIENT
  Age: 57 Year
  Sex: Female

DRUGS (2)
  1. BYETTA [Suspect]
  2. METFORMIN HCL [Suspect]

REACTIONS (8)
  - Renal failure acute [Unknown]
  - Diabetes mellitus inadequate control [Unknown]
  - Hyponatraemia [Unknown]
  - Hypothyroidism [Unknown]
  - Anaemia [Unknown]
  - Depression [Unknown]
  - Anxiety [Unknown]
  - Urinary tract infection [Unknown]
